FAERS Safety Report 6616240-7 (Version None)
Quarter: 2010Q1

REPORT INFORMATION
  Report Type: 
  Country: None (occurrence: None)
  Receive Date: 20100305
  Receipt Date: 20100223
  Transmission Date: 20100710
  Serious: Yes (Hospitalization)
  Sender: FDA-Public Use
  Company Number: GXKR2010IT00801

PATIENT
  Sex: Female

DRUGS (2)
  1. AMOXICILLIN [Suspect]
     Indication: COUGH
     Dosage: ONE POSOLOGICAL UNIT
     Route: 048
     Dates: start: 20090128, end: 20090128
  2. TACHIPIRINA [Concomitant]
     Indication: COUGH
     Dosage: 1 POSOLOGICAL UNIT
     Route: 065
     Dates: start: 20090128, end: 20090128

REACTIONS (3)
  - DYSPNOEA [None]
  - ERYTHEMA [None]
  - PARAESTHESIA [None]
